FAERS Safety Report 10525964 (Version 3)
Quarter: 2014Q4

REPORT INFORMATION
  Report Type: Spontaneous
  Country: FR (occurrence: FR)
  Receive Date: 20141017
  Receipt Date: 20141122
  Transmission Date: 20150528
  Serious: Yes (Life-Threatening, Hospitalization, Other)
  Sender: FDA-Public Use
  Company Number: FR-ASTRAZENECA-2014SE77400

PATIENT
  Age: 16623 Day
  Sex: Female

DRUGS (6)
  1. UNSPECIFIED NON STEROIDAL ANTI INFLAMMATORY DRUG [Concomitant]
     Indication: MIGRAINE
  2. OGAST [Concomitant]
     Active Substance: LANSOPRAZOLE
  3. LAMALINE [Concomitant]
     Active Substance: ACETAMINOPHEN\CAFFEINE\OPIUM
  4. ZOMIG [Suspect]
     Active Substance: ZOLMITRIPTAN
     Indication: MIGRAINE
     Dosage: ONE TABLET OF ZOMIG 2.5 MG AND THEN A SECOND TABLET OF ZOMIG AROUND 18:00 DUE TO INEFFICIENCY OF FIR
     Route: 048
     Dates: start: 20140913, end: 20140913
  5. KETOPROFEN. [Concomitant]
     Active Substance: KETOPROFEN
  6. PROPRANOLOL [Concomitant]
     Active Substance: PROPRANOLOL\PROPRANOLOL HYDROCHLORIDE
     Indication: MIGRAINE

REACTIONS (18)
  - Breath sounds abnormal [Unknown]
  - Aspartate aminotransferase increased [Unknown]
  - Drug ineffective [Unknown]
  - Cardio-respiratory arrest [Recovered/Resolved with Sequelae]
  - Memory impairment [Unknown]
  - Troponin increased [Unknown]
  - Psychomotor skills impaired [Unknown]
  - Ventricular hypokinesia [Unknown]
  - Ejection fraction decreased [Recovered/Resolved]
  - Ventricular tachycardia [Unknown]
  - Apraxia [Unknown]
  - Alanine aminotransferase increased [Unknown]
  - Ventricular fibrillation [Recovered/Resolved with Sequelae]
  - Electrocardiogram QT prolonged [Unknown]
  - Pericardial disease [Unknown]
  - Blood creatine phosphokinase increased [Unknown]
  - Disorientation [Unknown]
  - Arteriospasm coronary [Unknown]

NARRATIVE: CASE EVENT DATE: 20140913
